FAERS Safety Report 6765043-1 (Version None)
Quarter: 2010Q2

REPORT INFORMATION
  Report Type: 
  Country: None (occurrence: None)
  Receive Date: 20100609
  Receipt Date: 20100419
  Transmission Date: 20101027
  Serious: No
  Sender: FDA-Public Use
  Company Number: 2010009380

PATIENT
  Age: 2 Year
  Sex: Female

DRUGS (1)
  1. CHILDREN'S ZYRTEC ALLERGY [Suspect]
     Indication: ACCIDENTAL EXPOSURE
     Dosage: UNSPECIFIED ONCE, ORAL
     Route: 048
     Dates: start: 20100419, end: 20100419

REACTIONS (1)
  - ACCIDENTAL EXPOSURE [None]
